FAERS Safety Report 5048709-3 (Version None)
Quarter: 2006Q3

REPORT INFORMATION
  Report Type: 
  Country: None (occurrence: None)
  Receive Date: 20060712
  Receipt Date: 20060627
  Transmission Date: 20061208
  Serious: Yes (Death, Life-Threatening)
  Sender: FDA-Public Use
  Company Number: FR-AMGEN-UK184534

PATIENT
  Sex: Female

DRUGS (1)
  1. DARBEPOETIN ALFA [Suspect]
     Indication: ANAEMIA OF MALIGNANT DISEASE
     Route: 058
     Dates: start: 20060328, end: 20060530

REACTIONS (2)
  - PHLEBITIS [None]
  - PULMONARY EMBOLISM [None]
